FAERS Safety Report 14176572 (Version 1)
Quarter: 2017Q4

REPORT INFORMATION
  Report Type: Report from Study
  Country: US (occurrence: US)
  Receive Date: 20171110
  Receipt Date: 20171110
  Transmission Date: 20180321
  Serious: Yes (Death)
  Sender: FDA-Public Use
  Company Number: US-ROCHE-2022492

PATIENT
  Age: 73 Year
  Sex: Male

DRUGS (5)
  1. IBRITUMOMAB TIUXETAN/YTTRIUM-90 [Suspect]
     Active Substance: IBRITUMOMAB TIUXETAN
     Indication: PLASMA CELL MYELOMA
     Dosage: ON DOSE LEVEL 4 (16 GY)
     Route: 065
  2. MELPHALAN. [Suspect]
     Active Substance: MELPHALAN
     Indication: PLASMA CELL MYELOMA
     Route: 065
  3. SARGRAMOSTIM [Suspect]
     Active Substance: SARGRAMOSTIM
     Indication: PLASMA CELL MYELOMA
     Route: 065
  4. IBRITUMOMAB TIUXETAN/INDIUM-111 [Suspect]
     Active Substance: IBRITUMOMAB TIUXETAN
     Indication: PLASMA CELL MYELOMA
     Route: 065
  5. RITUXIMAB. [Suspect]
     Active Substance: RITUXIMAB
     Indication: PLASMA CELL MYELOMA
     Dosage: DAY - 22 AND ON DAY -14
     Route: 042

REACTIONS (3)
  - Hepatic necrosis [Fatal]
  - Cytomegalovirus infection [Fatal]
  - Hepatic failure [Fatal]
